FAERS Safety Report 4363693-3 (Version None)
Quarter: 2004Q2

REPORT INFORMATION
  Report Type: 
  Country: None (occurrence: None)
  Receive Date: 20040521
  Receipt Date: 20040521
  Transmission Date: 20050107
  Serious: Yes (Other)
  Sender: FDA-Public Use
  Company Number: None

PATIENT
  Sex: Female
  Weight: 56.6996 kg

DRUGS (11)
  1. ALDARA [Suspect]
     Indication: BASAL CELL CARCINOMA
     Dosage: 0.25 GM Q  HS TOPICAL
     Route: 061
     Dates: start: 20040408, end: 20040415
  2. SYNTHROID [Concomitant]
  3. ESTRATEST H.S. [Concomitant]
  4. ALLEGRA [Concomitant]
  5. CROMOLYN SODIUM [Concomitant]
  6. SODIUM CHLORIDE INJ [Concomitant]
  7. MEDROXYPROGESTERONE ACETATE [Concomitant]
  8. ACETAMINOPHEN [Concomitant]
  9. ALBUTEROL [Concomitant]
  10. GUAIFENESIN [Concomitant]
  11. KETOPROFEN [Concomitant]

REACTIONS (1)
  - HERPES SIMPLEX [None]
